FAERS Safety Report 11652746 (Version 3)
Quarter: 2015Q4

REPORT INFORMATION
  Report Type: Report from Study
  Country: NL (occurrence: NL)
  Receive Date: 20151022
  Receipt Date: 20151029
  Transmission Date: 20160304
  Serious: Yes (Hospitalization)
  Sender: FDA-Public Use
  Company Number: NL-ABBVIE-15P-114-1484035-00

PATIENT
  Age: 69 Year
  Sex: Male

DRUGS (2)
  1. DUODOPA [Suspect]
     Active Substance: CARBIDOPA\LEVODOPA
     Dosage: 20/5MG/ML
     Route: 050
     Dates: start: 20151018
  2. DUODOPA [Suspect]
     Active Substance: CARBIDOPA\LEVODOPA
     Indication: PARKINSON^S DISEASE
     Dosage: 20/5MG/ML
     Route: 050
     Dates: start: 20100303, end: 20151017

REACTIONS (10)
  - Device connection issue [Unknown]
  - Device issue [Unknown]
  - Hypotension [Recovering/Resolving]
  - Abnormal behaviour [Recovered/Resolved]
  - Malaise [Recovering/Resolving]
  - Unevaluable event [Recovering/Resolving]
  - Anxiety [Recovering/Resolving]
  - Dysphagia [Recovering/Resolving]
  - Muscle rigidity [Recovered/Resolved]
  - Device dislocation [Unknown]

NARRATIVE: CASE EVENT DATE: 20151017
